FAERS Safety Report 8795559 (Version 1)
Quarter: 2012Q4

REPORT INFORMATION
  Report Type: 
  Country: CA (occurrence: CA)
  Receive Date: 20120917
  Receipt Date: 20120917
  Transmission Date: 20130627
  Serious: Yes (Other)
  Sender: FDA-Public Use
  Company Number: CA-ELI_LILLY_AND_COMPANY-CA201209001715

PATIENT
  Age: 69 Year
  Sex: Female

DRUGS (8)
  1. FORTEO [Suspect]
     Indication: OSTEOPOROSIS
     Dosage: 20 ug, qd
     Route: 058
     Dates: start: 20110722
  2. PREMARIN [Concomitant]
  3. CALCIUM [Concomitant]
  4. VITAMIN D NOS [Concomitant]
  5. ALTACE [Concomitant]
  6. XARELTO [Concomitant]
  7. VITAMIN B12 [Concomitant]
  8. FOLIC ACID [Concomitant]

REACTIONS (1)
  - Osteoarthritis [Unknown]
